FAERS Safety Report 7449301-3 (Version None)
Quarter: 2011Q2

REPORT INFORMATION
  Report Type: 
  Country: None (occurrence: None)
  Receive Date: 20110502
  Receipt Date: 20110421
  Transmission Date: 20111010
  Serious: No
  Sender: FDA-Public Use
  Company Number: US-BIOGENIDEC-2011BI013715

PATIENT
  Age: 29 Year
  Sex: Female

DRUGS (1)
  1. TYSABRI [Suspect]
     Indication: CROHN'S DISEASE
     Route: 042
     Dates: start: 20110208

REACTIONS (3)
  - WHITE BLOOD CELL COUNT DECREASED [None]
  - LIVER FUNCTION TEST ABNORMAL [None]
  - HEPATIC ENZYME INCREASED [None]
